FAERS Safety Report 19977720 (Version 1)
Quarter: 2021Q4

REPORT INFORMATION
  Report Type: Spontaneous
  Country: US (occurrence: US)
  Receive Date: 20211020
  Receipt Date: 20211020
  Transmission Date: 20220303
  Serious: No
  Sender: FDA-Public Use
  Company Number: US-ALLERGAN-2118395US

PATIENT

DRUGS (2)
  1. LINZESS [Suspect]
     Active Substance: LINACLOTIDE
     Indication: Product used for unknown indication
     Dosage: UNK
  2. Insomnia medication [Concomitant]
     Indication: Insomnia

REACTIONS (8)
  - Dyschezia [Unknown]
  - Hyperhidrosis [Unknown]
  - Insomnia [Unknown]
  - Tinnitus [Unknown]
  - Proctalgia [Unknown]
  - Incorrect dose administered [Unknown]
  - Abdominal pain [Unknown]
  - Product packaging quantity issue [Unknown]

NARRATIVE: CASE EVENT DATE: 20210101
